FAERS Safety Report 22212209 (Version 2)
Quarter: 2023Q2

REPORT INFORMATION
  Report Type: Spontaneous
  Country: US (occurrence: US)
  Receive Date: 20230414
  Receipt Date: 20230428
  Transmission Date: 20230722
  Serious: No
  Sender: FDA-Public Use
  Company Number: US-PFIZER INC-202300153833

PATIENT
  Age: 69 Year
  Sex: Female

DRUGS (2)
  1. PAXLOVID [Suspect]
     Active Substance: NIRMATRELVIR\RITONAVIR
     Indication: COVID-19 treatment
     Dosage: UNK
     Dates: start: 20230401, end: 20230406
  2. ARIMIDEX [Concomitant]
     Active Substance: ANASTROZOLE
     Dosage: UNK
     Dates: start: 202010

REACTIONS (2)
  - COVID-19 [Recovering/Resolving]
  - Disease recurrence [Recovering/Resolving]

NARRATIVE: CASE EVENT DATE: 20230412
